FAERS Safety Report 12563825 (Version 1)
Quarter: 2016Q3

REPORT INFORMATION
  Report Type: Spontaneous
  Country: CA (occurrence: CA)
  Receive Date: 20160716
  Receipt Date: 20160716
  Transmission Date: 20161109
  Serious: Yes (Hospitalization, Other)
  Sender: FDA-Public Use
  Company Number: CA-AMGEN-CANSP2016089747

PATIENT
  Sex: Female

DRUGS (2)
  1. PROLIA [Suspect]
     Active Substance: DENOSUMAB
     Indication: PRODUCT USED FOR UNKNOWN INDICATION
     Dosage: UNK
     Route: 058
  2. IMURAN [Suspect]
     Active Substance: AZATHIOPRINE
     Indication: COLITIS ULCERATIVE
     Dosage: 100 MG, QD
     Route: 065

REACTIONS (6)
  - Hypotonia [Recovered/Resolved]
  - Off label use [Recovered/Resolved]
  - Aphasia [Recovered/Resolved]
  - Drug interaction [Recovered/Resolved]
  - Mental impairment [Recovered/Resolved]
  - Sensory loss [Recovered/Resolved]
